FAERS Safety Report 9667661 (Version 1)
Quarter: 2013Q4

REPORT INFORMATION
  Report Type: Spontaneous
  Country: US (occurrence: US)
  Receive Date: 20131101
  Receipt Date: 20131101
  Transmission Date: 20140711
  Serious: Yes (Hospitalization)
  Sender: FDA-Public Use
  Company Number: US-SAVIENT-2012S1000093

PATIENT
  Age: 32 Year
  Sex: Male

DRUGS (8)
  1. KRYSTEXXA INJECTION [Suspect]
     Indication: GOUT
     Route: 042
     Dates: start: 201207, end: 201207
  2. KRYSTEXXA INJECTION [Suspect]
     Indication: GOUT
     Route: 042
     Dates: start: 2012, end: 2012
  3. KRYSTEXXA INJECTION [Suspect]
     Indication: GOUT
     Route: 042
     Dates: start: 201208, end: 201208
  4. HYDROCORTISONE [Concomitant]
     Indication: PREMEDICATION
     Dates: start: 201207, end: 201207
  5. HYDROCORTISONE [Concomitant]
     Indication: PREMEDICATION
     Dates: start: 2012, end: 2012
  6. HYDROCORTISONE [Concomitant]
     Indication: PREMEDICATION
     Dates: start: 201208, end: 201208
  7. COLCHICINE [Concomitant]
     Indication: PRODUCT USED FOR UNKNOWN INDICATION
  8. PREDNISONE [Concomitant]
     Indication: PRODUCT USED FOR UNKNOWN INDICATION

REACTIONS (2)
  - Anaphylactic reaction [Recovered/Resolved]
  - Therapeutic response decreased [Unknown]
